FAERS Safety Report 4436004-2 (Version None)
Quarter: 2004Q3

REPORT INFORMATION
  Report Type: 
  Country: None (occurrence: None)
  Receive Date: 20040726
  Receipt Date: 20040513
  Transmission Date: 20050211
  Serious: No
  Sender: FDA-Public Use
  Company Number: USA040567495

PATIENT
  Sex: Female

DRUGS (2)
  1. FORTEO [Suspect]
  2. CALCIUM [Concomitant]

REACTIONS (1)
  - HYPERCALCAEMIA [None]
